FAERS Safety Report 12584733 (Version 1)
Quarter: 2016Q3

REPORT INFORMATION
  Report Type: Spontaneous
  Country: CN (occurrence: CN)
  Receive Date: 20160722
  Receipt Date: 20160722
  Transmission Date: 20161109
  Serious: Yes (Other)
  Sender: FDA-Public Use
  Company Number: CN-SA-2016SA131018

PATIENT
  Age: 52 Year
  Sex: Female
  Weight: 73 kg

DRUGS (4)
  1. ASPIRIN. [Concomitant]
     Active Substance: ASPIRIN
     Indication: ANGINA PECTORIS
     Dosage: ENTERIC-COATED TABLETS
     Route: 048
     Dates: start: 20160306, end: 20160314
  2. PLAVIX [Suspect]
     Active Substance: CLOPIDOGREL BISULFATE
     Indication: ANGINA PECTORIS
     Route: 048
     Dates: start: 20160306, end: 20160314
  3. CRESTOR [Suspect]
     Active Substance: ROSUVASTATIN CALCIUM
     Indication: ANGINA PECTORIS
     Route: 048
     Dates: start: 20160306, end: 20160312
  4. XIAO XIN TONG [Concomitant]
     Indication: ANGINA PECTORIS
     Route: 048
     Dates: start: 20160306, end: 20160314

REACTIONS (3)
  - Hepatic enzyme increased [Recovering/Resolving]
  - Alanine aminotransferase increased [Recovering/Resolving]
  - Aspartate aminotransferase increased [Recovering/Resolving]

NARRATIVE: CASE EVENT DATE: 20160312
